FAERS Safety Report 7651800-6 (Version None)
Quarter: 2011Q3

REPORT INFORMATION
  Report Type: 
  Country: None (occurrence: None)
  Receive Date: 20110802
  Receipt Date: 20110728
  Transmission Date: 20111222
  Serious: Yes (Hospitalization)
  Sender: FDA-Public Use
  Company Number: US-AMGEN-USACT2011029201

PATIENT
  Age: 45 Year
  Sex: Female
  Weight: 83.4 kg

DRUGS (4)
  1. ETANERCEPT [Suspect]
     Indication: GRAFT VERSUS HOST DISEASE
     Dosage: 25 MG, 2 TIMES/WK
     Route: 058
     Dates: start: 20110426
  2. MEDROL [Suspect]
  3. TACROLIMUS [Concomitant]
  4. MICOFENOLATO MOFETIL G [Concomitant]
     Dosage: UNK
     Dates: end: 20110527

REACTIONS (2)
  - HYPOTENSION [None]
  - MENTAL STATUS CHANGES [None]
